FAERS Safety Report 8275185-X (Version None)
Quarter: 2012Q2

REPORT INFORMATION
  Report Type: 
  Country: None (occurrence: None)
  Receive Date: 20120411
  Receipt Date: 20120403
  Transmission Date: 20120825
  Serious: Yes (Other)
  Sender: FDA-Public Use
  Company Number: PHHY2012CA028595

PATIENT
  Age: 17 Year
  Sex: Female

DRUGS (2)
  1. METRONIDAZOLE [Concomitant]
     Indication: VAGINITIS BACTERIAL
  2. MEDROXYPROGESTERONE [Suspect]
     Dosage: 150 MG, UNK

REACTIONS (15)
  - OBSESSIVE THOUGHTS [None]
  - MOOD ALTERED [None]
  - ANHEDONIA [None]
  - AFFECTIVE DISORDER [None]
  - NIGHTMARE [None]
  - DISTURBANCE IN ATTENTION [None]
  - ASTHENIA [None]
  - DEPRESSION [None]
  - MORBID THOUGHTS [None]
  - IRRITABILITY [None]
  - DYSPHORIA [None]
  - DEPRESSED MOOD [None]
  - SLEEP DISORDER [None]
  - WEIGHT DECREASED [None]
  - INTENTIONAL SELF-INJURY [None]
